FAERS Safety Report 4416928-2 (Version None)
Quarter: 2004Q3

REPORT INFORMATION
  Report Type: 
  Country: None (occurrence: None)
  Receive Date: 20040804
  Receipt Date: 20040804
  Transmission Date: 20050211
  Serious: No
  Sender: FDA-Public Use
  Company Number: None

PATIENT
  Age: 56 Year
  Sex: Female
  Weight: 76.2043 kg

DRUGS (2)
  1. REMICADE [Suspect]
     Indication: IRITIS
     Dates: start: 20040702, end: 20040702
  2. REMICADE [Suspect]
     Indication: PSORIATIC ARTHROPATHY
     Dates: start: 20040702, end: 20040702

REACTIONS (6)
  - CHILLS [None]
  - DISEASE RECURRENCE [None]
  - HYPOTENSION [None]
  - JOINT SWELLING [None]
  - SERUM SICKNESS [None]
  - SINUSITIS [None]
